FAERS Safety Report 24994135 (Version 1)
Quarter: 2025Q1

REPORT INFORMATION
  Report Type: Spontaneous
  Country: CA (occurrence: CA)
  Receive Date: 20250221
  Receipt Date: 20250221
  Transmission Date: 20250409
  Serious: Yes (Other)
  Sender: TEVA
  Company Number: CA-TEVA-VS-3301683

PATIENT
  Sex: Male
  Weight: 89 kg

DRUGS (4)
  1. METHOTREXATE [Suspect]
     Active Substance: METHOTREXATE
     Indication: Crohn^s disease
     Route: 065
  2. BUDESONIDE [Suspect]
     Active Substance: BUDESONIDE
     Indication: Crohn^s disease
     Route: 065
  3. SKYRIZI [Suspect]
     Active Substance: RISANKIZUMAB-RZAA
     Indication: Crohn^s disease
     Route: 058
  4. MESALAMINE [Suspect]
     Active Substance: MESALAMINE
     Indication: Crohn^s disease
     Route: 065

REACTIONS (5)
  - Crohn^s disease [Unknown]
  - Drug ineffective [Unknown]
  - Drug ineffective [Unknown]
  - Drug ineffective [Unknown]
  - Drug ineffective [Unknown]
